FAERS Safety Report 4801102-8 (Version None)
Quarter: 2005Q4

REPORT INFORMATION
  Report Type: 
  Country: None (occurrence: None)
  Receive Date: 20051011
  Receipt Date: 20050922
  Transmission Date: 20060501
  Serious: Yes (Hospitalization, Other)
  Sender: FDA-Public Use
  Company Number: BEWYE003323SEP05

PATIENT
  Age: 75 Year
  Sex: Female

DRUGS (3)
  1. MAXSOTEN [Suspect]
     Dosage: HALF TABLET ORAL  SINCE MORE THAN 6 MONTHS
     Route: 048
  2. AMOXI-CLAVULANICO (AMOXICILLIN/CLAVULANIC ACID) [Suspect]
     Dosage: 875 MG/DAY ORAL
     Route: 048
     Dates: start: 20050910, end: 20050910
  3. RAMIPRIL [Concomitant]

REACTIONS (1)
  - ANAPHYLACTIC SHOCK [None]
